FAERS Safety Report 17650853 (Version 1)
Quarter: 2020Q2

REPORT INFORMATION
  Report Type: Spontaneous
  Country: US (occurrence: US)
  Receive Date: 20200408
  Receipt Date: 20200408
  Transmission Date: 20200713
  Serious: Yes (Hospitalization)
  Sender: FDA-Public Use
  Company Number: US-INCYTE CORPORATION-2020IN003262

PATIENT

DRUGS (1)
  1. JAKAFI [Suspect]
     Active Substance: RUXOLITINIB
     Indication: MYELOFIBROSIS
     Dosage: UNK
     Route: 065

REACTIONS (9)
  - Hypotension [Unknown]
  - Withdrawal syndrome [Unknown]
  - Thrombocytopenia [Unknown]
  - Asthenia [Unknown]
  - Mental disorder [Unknown]
  - Lethargy [Unknown]
  - Disorientation [Unknown]
  - Spinal cord haematoma [Unknown]
  - Back pain [Unknown]
